FAERS Safety Report 19897303 (Version 1)
Quarter: 2021Q3

REPORT INFORMATION
  Report Type: Spontaneous
  Country: SA (occurrence: SA)
  Receive Date: 20210929
  Receipt Date: 20210929
  Transmission Date: 20211014
  Serious: Yes (Other)
  Sender: FDA-Public Use
  Company Number: SA-BAYER-2021A215705

PATIENT
  Age: 73 Year
  Sex: Female

DRUGS (2)
  1. REGORAFENIB. [Suspect]
     Active Substance: REGORAFENIB
     Indication: METASTASES TO OVARY
  2. REGORAFENIB. [Suspect]
     Active Substance: REGORAFENIB
     Indication: ADENOCARCINOMA OF COLON
     Dosage: 80 MG, UNK 21 DAYS CYCLE
     Dates: start: 201812

REACTIONS (4)
  - Orthopnoea [None]
  - Peripheral swelling [None]
  - Off label use [None]
  - Cardiac failure [None]

NARRATIVE: CASE EVENT DATE: 201812
